FAERS Safety Report 12730973 (Version 8)
Quarter: 2018Q1

REPORT INFORMATION
  Report Type: Report from Study
  Country: JP (occurrence: JP)
  Receive Date: 20160912
  Receipt Date: 20180213
  Transmission Date: 20180508
  Serious: Yes (Hospitalization)
  Sender: FDA-Public Use
  Company Number: JP-ACTELION-A-CH2016-141945

PATIENT
  Age: 82 Year
  Sex: Female

DRUGS (17)
  1. OPSUMIT [Suspect]
     Active Substance: MACITENTAN
     Dosage: 2.5 MG, QD
     Route: 048
     Dates: start: 20160823, end: 20161027
  2. AZOSEMIDE [Suspect]
     Active Substance: AZOSEMIDE
     Indication: CARDIAC FAILURE
     Dosage: 60 MG, QD
     Route: 048
     Dates: start: 20161130
  3. OXYGEN. [Concomitant]
     Active Substance: OXYGEN
     Indication: PRODUCT USED FOR UNKNOWN INDICATION
  4. OPSUMIT [Suspect]
     Active Substance: MACITENTAN
     Dosage: 5 MG, QD
     Route: 048
     Dates: start: 20161208, end: 20161209
  5. OPSUMIT [Suspect]
     Active Substance: MACITENTAN
     Dosage: 5 MG, QD
     Route: 048
     Dates: start: 20161028, end: 20161201
  6. CARELOAD [Concomitant]
     Active Substance: BERAPROST SODIUM
     Indication: PRODUCT USED FOR UNKNOWN INDICATION
  7. NIFEDIPINE. [Concomitant]
     Active Substance: NIFEDIPINE
  8. FUROSEMIDE. [Suspect]
     Active Substance: FUROSEMIDE
     Dosage: 40 MG, QD
     Route: 048
  9. MAINTATE [Concomitant]
     Active Substance: BISOPROLOL FUMARATE
  10. OPSUMIT [Suspect]
     Active Substance: MACITENTAN
     Indication: PULMONARY ARTERIAL HYPERTENSION
     Dosage: 10 MG, QD
     Route: 048
     Dates: start: 20160607, end: 20160706
  11. LOSARTAN K [Concomitant]
     Active Substance: LOSARTAN POTASSIUM
     Indication: PRODUCT USED FOR UNKNOWN INDICATION
  12. CLARITHROMYCIN. [Concomitant]
     Active Substance: CLARITHROMYCIN
     Indication: OTITIS MEDIA
     Dosage: 400 MG, QD
     Route: 048
     Dates: start: 20161206, end: 20161212
  13. OPSUMIT [Suspect]
     Active Substance: MACITENTAN
     Dosage: 5 MG, QD
     Route: 048
     Dates: start: 20160802, end: 20160808
  14. OPSUMIT [Suspect]
     Active Substance: MACITENTAN
     Dosage: 5 MG, EVERY OTHER DAY
     Route: 048
     Dates: start: 20161202, end: 20161207
  15. FUROSEMIDE. [Suspect]
     Active Substance: FUROSEMIDE
     Indication: CARDIAC FAILURE
     Dosage: 20 MG, BID
     Route: 048
     Dates: start: 20160622
  16. RIOCIGUAT [Concomitant]
     Active Substance: RIOCIGUAT
     Indication: PRODUCT USED FOR UNKNOWN INDICATION
  17. LIXIANA [Concomitant]
     Active Substance: EDOXABAN TOSYLATE
     Indication: PRODUCT USED FOR UNKNOWN INDICATION

REACTIONS (16)
  - Ascites [Recovered/Resolved]
  - Oedema [Recovering/Resolving]
  - Jugular vein distension [Recovering/Resolving]
  - Renal impairment [Recovered/Resolved]
  - Generalised oedema [Recovered/Resolved]
  - Blood urea increased [Recovered/Resolved]
  - Left ventricular failure [Recovering/Resolving]
  - Haemoglobin decreased [Recovered/Resolved]
  - Otitis media [Recovered/Resolved]
  - Right ventricular failure [Recovering/Resolving]
  - Hyponatraemia [Recovering/Resolving]
  - Red blood cell count decreased [Recovered/Resolved]
  - Blood creatinine increased [Recovered/Resolved]
  - Anaemia [Recovered/Resolved]
  - Haematocrit decreased [Recovered/Resolved]
  - Urine output decreased [Recovered/Resolved]

NARRATIVE: CASE EVENT DATE: 20160630
